FAERS Safety Report 8845252 (Version 1)
Quarter: 2012Q4

REPORT INFORMATION
  Report Type: Spontaneous
  Country: US (occurrence: None)
  Receive Date: 20121016
  Receipt Date: 20121016
  Transmission Date: 20130627
  Serious: Yes (Hospitalization)
  Sender: FDA-Public Use
  Company Number: None

PATIENT
  Age: 63 Year
  Sex: Male

DRUGS (3)
  1. ALIMTA [Suspect]
     Indication: NON-SMALL CELL LUNG CANCER STAGE IV
     Dates: start: 20120717
  2. CARBOPLATIN [Suspect]
     Dosage: 518mg; Q 21/days
     Dates: start: 20120717
  3. AVASTIN [Suspect]
     Dosage: 1548mg; Q 21 days

REACTIONS (4)
  - Syncope [None]
  - Fall [None]
  - Blood creatinine increased [None]
  - Orthostatic hypotension [None]
